FAERS Safety Report 15479658 (Version 1)
Quarter: 2018Q4

REPORT INFORMATION
  Report Type: Spontaneous
  Country: TR (occurrence: TR)
  Receive Date: 20181009
  Receipt Date: 20181009
  Transmission Date: 20190205
  Serious: Yes (Hospitalization, Other)
  Sender: FDA-Public Use
  Company Number: TR-UNICHEM PHARMACEUTICALS (USA) INC-UCM201809-000247

PATIENT
  Age: 17 Month
  Sex: Male

DRUGS (2)
  1. DIVALPROEX SODIUM. [Suspect]
     Active Substance: DIVALPROEX SODIUM
  2. PHENOBARBITAL. [Suspect]
     Active Substance: PHENOBARBITAL

REACTIONS (5)
  - Hyperammonaemic encephalopathy [Recovering/Resolving]
  - Hyperammonaemia [Recovering/Resolving]
  - Respiratory depression [Unknown]
  - Drug interaction [Unknown]
  - Seizure [Recovering/Resolving]
